FAERS Safety Report 17174288 (Version 1)
Quarter: 2019Q4

REPORT INFORMATION
  Report Type: Spontaneous
  Country: US (occurrence: US)
  Receive Date: 20191219
  Receipt Date: 20191219
  Transmission Date: 20200122
  Serious: Yes (Life-Threatening, Hospitalization)
  Sender: FDA-Public Use
  Company Number: US-STRIDES ARCOLAB LIMITED-2019SP011812

PATIENT
  Age: 33 Year
  Sex: Female

DRUGS (1)
  1. IBUPROFEN. [Suspect]
     Active Substance: IBUPROFEN
     Indication: PRODUCT USED FOR UNKNOWN INDICATION
     Dosage: UNK
     Route: 065

REACTIONS (19)
  - Mucocutaneous rash [Recovered/Resolved]
  - Oropharyngeal pain [Recovered/Resolved]
  - Pyrexia [Recovered/Resolved]
  - Malaise [Recovered/Resolved]
  - Tachycardia [Recovered/Resolved]
  - Ocular surface disease [Recovered/Resolved]
  - Cough [Recovered/Resolved]
  - Lip haemorrhage [Recovered/Resolved]
  - Scab [Recovered/Resolved]
  - SJS-TEN overlap [Recovered/Resolved]
  - Dyspnoea [Recovered/Resolved]
  - Mouth ulceration [Recovered/Resolved]
  - Conjunctival hyperaemia [Recovered/Resolved]
  - Oral mucosal exfoliation [Recovered/Resolved]
  - Thrombocytopenia [Recovered/Resolved]
  - Epidermal necrosis [Recovered/Resolved]
  - Pharyngeal haemorrhage [Recovered/Resolved]
  - Chest pain [Recovered/Resolved]
  - Vaginal exfoliation [Recovered/Resolved]
